FAERS Safety Report 5424824-7 (Version None)
Quarter: 2007Q3

REPORT INFORMATION
  Report Type: 
  Country: None (occurrence: None)
  Receive Date: 20070824
  Receipt Date: 20070821
  Transmission Date: 20080115
  Serious: Yes (Hospitalization)
  Sender: FDA-Public Use
  Company Number: HQWYE744721AUG07

PATIENT
  Sex: Male

DRUGS (6)
  1. CORDAREX [Suspect]
     Route: 048
     Dates: end: 20070701
  2. CORDAREX [Suspect]
     Dosage: DOSE UNKNOWN
     Route: 048
     Dates: start: 20070701
  3. SORTIS ^GOEDECKE^ [Concomitant]
     Indication: HYPERCHOLESTEROLAEMIA
     Dosage: 5 MG, FREQUENCY UNSPECIFIED
     Route: 048
  4. ALLOPURINOL [Concomitant]
     Indication: HYPERURICAEMIA
     Dosage: 150 MG, FREQUENCY UNSPECIFIED
     Route: 048
  5. TORSEMIDE [Concomitant]
     Indication: POLYURIA
     Dosage: 5 MG, FREQUENCY UNSPECIFIED
     Route: 048
  6. SPIRONOLACTONE [Concomitant]
     Indication: POLYURIA
     Dosage: 25 MG, FREQUENCY UNSPECIFIED
     Route: 048

REACTIONS (3)
  - CONSTIPATION [None]
  - GASTROINTESTINAL DISORDER [None]
  - NAUSEA [None]
